FAERS Safety Report 8657388 (Version 2)
Quarter: 2013Q4

REPORT INFORMATION
  Report Type: Spontaneous
  Country: US (occurrence: US)
  Receive Date: 20120710
  Receipt Date: 20131105
  Transmission Date: 20140711
  Serious: Yes (Disabling, Other)
  Sender: FDA-Public Use
  Company Number: US-009507513-1206USA03969

PATIENT
  Sex: Female
  Weight: 48 kg

DRUGS (2)
  1. FOSAMAX [Suspect]
     Indication: OSTEOPOROSIS
     Dosage: 70 MG, UNK
     Route: 048
  2. FOSAMAX [Concomitant]

REACTIONS (3)
  - Bone pain [Unknown]
  - Femur fracture [Unknown]
  - Gait disturbance [Unknown]
